FAERS Safety Report 8315158-1 (Version None)
Quarter: 2012Q2

REPORT INFORMATION
  Report Type: 
  Country: None (occurrence: None)
  Receive Date: 20120426
  Receipt Date: 20120420
  Transmission Date: 20120825
  Serious: Yes (Other)
  Sender: FDA-Public Use
  Company Number: US-GLAXOSMITHKLINE-A0974628A

PATIENT
  Age: 80 Year
  Sex: Female

DRUGS (4)
  1. RAMIPRIL [Concomitant]
  2. METOPROLOL TARTRATE [Concomitant]
  3. RYTHMOL SR [Suspect]
     Indication: ATRIAL FIBRILLATION
     Dosage: 325MG TWICE PER DAY
     Route: 048
  4. SYNTHROID [Concomitant]

REACTIONS (2)
  - PNEUMONITIS [None]
  - LYMPHADENOPATHY [None]
